FAERS Safety Report 24867021 (Version 1)
Quarter: 2025Q1

REPORT INFORMATION
  Report Type: Report from Study
  Country: IN (occurrence: IN)
  Receive Date: 20250121
  Receipt Date: 20250121
  Transmission Date: 20250409
  Serious: Yes (Other)
  Sender: NOVARTIS
  Company Number: IN-002147023-NVSC2021IN246958

PATIENT
  Age: 44 Year
  Sex: Male

DRUGS (4)
  1. CYCLOSPORINE [Suspect]
     Active Substance: CYCLOSPORINE
     Indication: Renal transplant
     Dosage: 50 MG, QD
     Route: 048
     Dates: start: 20160914
  2. CYCLOSPORINE [Suspect]
     Active Substance: CYCLOSPORINE
     Dosage: 75 MG, QD
     Route: 048
  3. CYCLOSPORINE [Suspect]
     Active Substance: CYCLOSPORINE
     Dosage: 50 MG, BID
     Route: 048
  4. MYFORTIC [Suspect]
     Active Substance: MYCOPHENOLATE SODIUM
     Indication: Renal transplant
     Dosage: 360 MG, BID
     Route: 048
     Dates: start: 20160914

REACTIONS (8)
  - Herpes zoster [Recovered/Resolved]
  - Liver injury [Unknown]
  - Thalassaemia beta [Unknown]
  - COVID-19 [Recovered/Resolved]
  - Nasal congestion [Unknown]
  - Hypertension [Unknown]
  - Hepatic cyst [Unknown]
  - Off label use [Unknown]

NARRATIVE: CASE EVENT DATE: 20161216
